FAERS Safety Report 18208302 (Version 2)
Quarter: 2020Q3

REPORT INFORMATION
  Report Type: Spontaneous
  Country: CN (occurrence: CN)
  Receive Date: 20200828
  Receipt Date: 20200902
  Transmission Date: 20201103
  Serious: Yes (Disabling, Other)
  Sender: FDA-Public Use
  Company Number: CN-PFIZER INC-2020331898

PATIENT
  Age: 53 Year
  Sex: Female
  Weight: 76 kg

DRUGS (2)
  1. TONG AO [Concomitant]
     Active Substance: LEUCOVORIN CALCIUM
     Indication: CHEMOTHERAPY
     Dosage: 6 MG, ALTERNATE DAY (ONCE PER 2 DAYS)
     Route: 058
     Dates: start: 20200731, end: 20200806
  2. METHOTREXATE SODIUM. [Suspect]
     Active Substance: METHOTREXATE SODIUM
     Indication: BENIGN HYDATIDIFORM MOLE
     Dosage: 60 MG, ALTERNATE DAY (ONCE PER 2 DAYS)
     Route: 058
     Dates: start: 20200731, end: 20200806

REACTIONS (3)
  - Liver injury [Recovering/Resolving]
  - Off label use [Unknown]
  - Product use issue [Unknown]

NARRATIVE: CASE EVENT DATE: 20200807
